FAERS Safety Report 23144761 (Version 2)
Quarter: 2023Q4

REPORT INFORMATION
  Report Type: Spontaneous
  Country: US (occurrence: US)
  Receive Date: 20231103
  Receipt Date: 20231228
  Transmission Date: 20240109
  Serious: No
  Sender: FDA-Public Use
  Company Number: US-PFIZER INC-PV202300144324

PATIENT
  Age: 81 Year
  Sex: Male
  Weight: 95.25 kg

DRUGS (4)
  1. TALZENNA [Suspect]
     Active Substance: TALAZOPARIB TOSYLATE
     Indication: Prostate cancer stage IV
     Dosage: 0.25 MG, 1X/DAY
     Route: 048
  2. TALZENNA [Suspect]
     Active Substance: TALAZOPARIB TOSYLATE
     Dosage: 0.35 MG, DAILY
     Route: 048
     Dates: start: 20231103
  3. TALZENNA [Suspect]
     Active Substance: TALAZOPARIB TOSYLATE
     Dosage: 0.35 MG, DAILY
     Route: 048
  4. XTANDI [Concomitant]
     Active Substance: ENZALUTAMIDE
     Indication: Prostate cancer stage IV
     Dosage: UNK
     Dates: start: 20231011

REACTIONS (2)
  - Laboratory test abnormal [Unknown]
  - Neoplasm progression [Unknown]

NARRATIVE: CASE EVENT DATE: 20230101
